FAERS Safety Report 4708010-1 (Version None)
Quarter: 2005Q3

REPORT INFORMATION
  Report Type: 
  Country: None (occurrence: None)
  Receive Date: 20050707
  Receipt Date: 20041001
  Transmission Date: 20060218
  Serious: Yes (Other)
  Sender: FDA-Public Use
  Company Number: FR-BRISTOL-MYERS SQUIBB COMPANY-12720546

PATIENT
  Age: 48 Year
  Sex: Male

DRUGS (1)
  1. QUESTRAN [Suspect]
     Indication: HYPERCHOLESTEROLAEMIA
     Route: 048
     Dates: start: 20020101

REACTIONS (2)
  - NEOPLASM MALIGNANT [None]
  - RECTAL HAEMORRHAGE [None]
